FAERS Safety Report 9708812 (Version 1)
Quarter: 2013Q4

REPORT INFORMATION
  Report Type: Spontaneous
  Country: US (occurrence: US)
  Receive Date: 20131125
  Receipt Date: 20131125
  Transmission Date: 20140711
  Serious: Yes (Death, Hospitalization)
  Sender: FDA-Public Use
  Company Number: PHHY2013US133234

PATIENT
  Age: 50 Year
  Sex: Female

DRUGS (6)
  1. METOCLOPRAMIDE [Suspect]
  2. PARACETAMOL [Suspect]
     Dosage: 1 G, EVERY 4 HOURS
  3. NITROFURANTOIN [Suspect]
     Indication: URINARY TRACT INFECTION
  4. VICODIN [Suspect]
     Indication: PAIN
  5. DILAUDID [Concomitant]
     Indication: PAIN
  6. ESTROGENS [Concomitant]
     Indication: DYSMENORRHOEA

REACTIONS (22)
  - Chronic hepatic failure [Fatal]
  - Septic shock [Unknown]
  - Respiratory failure [Unknown]
  - Coagulopathy [Unknown]
  - Gastrointestinal haemorrhage [Unknown]
  - Cerebral haemorrhage [Unknown]
  - Acute hepatic failure [Unknown]
  - Abdominal pain [Unknown]
  - Hepatic enzyme increased [Unknown]
  - Cholestatic liver injury [Unknown]
  - Jaundice [Unknown]
  - Ocular icterus [Unknown]
  - Cholestasis [Unknown]
  - Malnutrition [Unknown]
  - Generalised oedema [Unknown]
  - Hepatic function abnormal [Unknown]
  - Brain herniation [Unknown]
  - Neurological decompensation [Unknown]
  - Staphylococcus test positive [Unknown]
  - Clostridium difficile colitis [Unknown]
  - Chills [Unknown]
  - Pyrexia [Unknown]
